FAERS Safety Report 10903764 (Version 1)
Quarter: 2015Q1

REPORT INFORMATION
  Report Type: Spontaneous
  Country: CN (occurrence: CN)
  Receive Date: 20150311
  Receipt Date: 20150311
  Transmission Date: 20150721
  Serious: Yes (Life-Threatening)
  Sender: FDA-Public Use
  Company Number: CN-ROCHE-1549033

PATIENT
  Age: 52 Year
  Sex: Male

DRUGS (1)
  1. TAMIFLU [Suspect]
     Active Substance: OSELTAMIVIR PHOSPHATE
     Indication: AVIAN INFLUENZA
     Route: 065
     Dates: start: 20150219

REACTIONS (1)
  - Avian influenza [Unknown]

NARRATIVE: CASE EVENT DATE: 20150305
